FAERS Safety Report 10751593 (Version 1)
Quarter: 2015Q1

REPORT INFORMATION
  Report Type: Spontaneous
  Country: KR (occurrence: None)
  Receive Date: 20150128
  Receipt Date: 20150128
  Transmission Date: 20150721
  Serious: Yes (Hospitalization)
  Sender: FDA-Public Use
  Company Number: NSR_01772_2015

PATIENT
  Age: 72 Year
  Sex: Male

DRUGS (6)
  1. HYDROXYZINE [Suspect]
     Active Substance: HYDROXYZINE\HYDROXYZINE HYDROCHLORIDE
     Indication: SKIN LESION
     Route: 048
  2. EMEDASTINE FUMARATE (EMEDASTINE FUMARATE) [Suspect]
     Active Substance: EMEDASTINE DIFUMARATE
     Indication: SKIN LESION
     Route: 048
  3. AZELASTINE (AZELASTINE) (AZELASTINE) [Suspect]
     Active Substance: AZELASTINE
     Indication: SKIN LESION
     Route: 048
  4. TOPICAL AGENTS [Concomitant]
  5. AMLODIPINE [Concomitant]
     Active Substance: AMLODIPINE BESYLATE
  6. GLIMEPIRIDE. [Concomitant]
     Active Substance: GLIMEPIRIDE

REACTIONS (2)
  - Normochromic normocytic anaemia [None]
  - Chorea [None]
